FAERS Safety Report 7455643-8 (Version None)
Quarter: 2011Q2

REPORT INFORMATION
  Report Type: 
  Country: None (occurrence: None)
  Receive Date: 20110503
  Receipt Date: 20110428
  Transmission Date: 20111010
  Serious: Yes (Death, Other)
  Sender: FDA-Public Use
  Company Number: FR-ROCHE-774323

PATIENT
  Sex: Female
  Weight: 60 kg

DRUGS (7)
  1. SERESTA [Concomitant]
     Indication: ALCOHOL USE
     Dosage: DRUG REPORTED AS: SERESTA 50, DOSE 0.5/0.5/1
     Route: 048
  2. DEPAKENE [Concomitant]
     Indication: EPILEPSY
     Dosage: DRUG REPORTED AS: DEPAKINE 50, DOSE: 1.5
     Route: 048
     Dates: start: 20101101
  3. BEVACIZUMAB [Suspect]
     Indication: NON-SMALL CELL LUNG CANCER
     Route: 065
     Dates: start: 20110414
  4. CISPLATIN [Suspect]
     Route: 065
     Dates: start: 20110414
  5. PEMETREXED [Suspect]
     Route: 065
     Dates: start: 20110414
  6. SPECIAFOLDINE [Concomitant]
     Indication: CHEMOTHERAPY
     Dosage: DRUG REPORTED AS: SPECIAFOLDINE 0.4, DOSE: 1
     Route: 048
  7. NITRODERM [Concomitant]
     Dosage: DOSE REPORTED AS: NITRIDERM 10, ROUTE: PATCH
     Route: 050
     Dates: start: 20110301

REACTIONS (2)
  - TACHYCARDIA [None]
  - ATRIOVENTRICULAR DISSOCIATION [None]
